FAERS Safety Report 7354134-2 (Version None)
Quarter: 2011Q1

REPORT INFORMATION
  Report Type: 
  Country: None (occurrence: None)
  Receive Date: 20110315
  Receipt Date: 20110308
  Transmission Date: 20110831
  Serious: Yes (Hospitalization)
  Sender: FDA-Public Use
  Company Number: US-BRISTOL-MYERS SQUIBB COMPANY-15594740

PATIENT
  Age: 71 Year
  Sex: Male
  Weight: 87 kg

DRUGS (8)
  1. AMLODIPINE [Concomitant]
  2. ASPIRIN [Concomitant]
  3. ATENOLOL [Concomitant]
  4. MULTI-VITAMIN [Concomitant]
  5. METFORMIN HCL [Concomitant]
  6. PRAVASTATIN SODIUM [Concomitant]
  7. AVALIDE [Suspect]
     Dosage: 1 DF=300/12.5
  8. PLAVIX [Concomitant]

REACTIONS (3)
  - STENT PLACEMENT [None]
  - PAIN [None]
  - DYSPEPSIA [None]
